FAERS Safety Report 9475041 (Version 1)
Quarter: 2013Q3

REPORT INFORMATION
  Report Type: Spontaneous
  Country: US (occurrence: US)
  Receive Date: 20130824
  Receipt Date: 20130824
  Transmission Date: 20140515
  Serious: No
  Sender: FDA-Public Use
  Company Number: US-B.I. PHARMACEUTICALS,INC./RIDGEFIELD-2013-BI-25691BP

PATIENT
  Sex: Male

DRUGS (3)
  1. COMBIVENT [Suspect]
     Indication: BRONCHITIS CHRONIC
     Dosage: STRENGTH: 18 MCG / 103 MCG; DAILY DOSE: 144 MCG/824 MCG
     Route: 055
     Dates: start: 2011, end: 201308
  2. XALATAN [Concomitant]
     Indication: GLAUCOMA
     Dates: start: 2008
  3. TRUSOPT [Concomitant]
     Indication: GLAUCOMA
     Dates: start: 2008

REACTIONS (1)
  - Hypertension [Recovered/Resolved]
